FAERS Safety Report 21363770 (Version 1)
Quarter: 2022Q3

REPORT INFORMATION
  Report Type: Other
  Country: JP (occurrence: None)
  Receive Date: 20220922
  Receipt Date: 20220922
  Transmission Date: 20221027
  Serious: Yes (Other)
  Sender: FDA-Public Use
  Company Number: JP-ROCHE-3184219

PATIENT
  Age: 82 Year
  Sex: Female
  Weight: 55 kg

DRUGS (9)
  1. RITUXAN [Suspect]
     Active Substance: RITUXIMAB
     Indication: Diffuse large B-cell lymphoma
     Route: 041
     Dates: end: 20211130
  2. POLIVY [Suspect]
     Active Substance: POLATUZUMAB VEDOTIN-PIIQ
     Indication: Diffuse large B-cell lymphoma
     Route: 042
     Dates: start: 20210908, end: 20210908
  3. POLIVY [Suspect]
     Active Substance: POLATUZUMAB VEDOTIN-PIIQ
     Route: 042
     Dates: start: 20210928, end: 20210928
  4. POLIVY [Suspect]
     Active Substance: POLATUZUMAB VEDOTIN-PIIQ
     Route: 042
     Dates: start: 20211019, end: 20211019
  5. POLIVY [Suspect]
     Active Substance: POLATUZUMAB VEDOTIN-PIIQ
     Route: 042
     Dates: start: 20211109, end: 20211109
  6. POLIVY [Suspect]
     Active Substance: POLATUZUMAB VEDOTIN-PIIQ
     Route: 042
     Dates: start: 20211130, end: 20211130
  7. BENDAMUSTINE HYDROCHLORIDE [Suspect]
     Active Substance: BENDAMUSTINE HYDROCHLORIDE
     Indication: Diffuse large B-cell lymphoma
     Route: 042
     Dates: start: 20210908, end: 20211201
  8. SULFAMETHOXAZOLE\TRIMETHOPRIM [Concomitant]
     Active Substance: SULFAMETHOXAZOLE\TRIMETHOPRIM
     Indication: Infection prophylaxis
     Route: 048
     Dates: start: 20210909
  9. ACYCLOVIR [Concomitant]
     Active Substance: ACYCLOVIR
     Indication: Infection prophylaxis
     Route: 048
     Dates: start: 20210909

REACTIONS (2)
  - White blood cell count decreased [Recovered/Resolved]
  - Neutrophil count decreased [Recovered/Resolved]

NARRATIVE: CASE EVENT DATE: 20210913
